FAERS Safety Report 21873723 (Version 2)
Quarter: 2023Q1

REPORT INFORMATION
  Report Type: Spontaneous
  Country: US (occurrence: US)
  Receive Date: 20230117
  Receipt Date: 20230122
  Transmission Date: 20230417
  Serious: No
  Sender: FDA-Public Use
  Company Number: US-Calliditas-2022CAL00665

PATIENT
  Sex: Male

DRUGS (5)
  1. TARPEYO [Suspect]
     Active Substance: BUDESONIDE
     Indication: IgA nephropathy
     Dosage: 16MG (4MG CAPSULES) DAILY
     Route: 048
     Dates: start: 20220618, end: 20230119
  2. LISINOPRIL [Concomitant]
     Active Substance: LISINOPRIL
  3. CRESTOR [Concomitant]
     Active Substance: ROSUVASTATIN CALCIUM
  4. ALLOPURINOL [Concomitant]
     Active Substance: ALLOPURINOL
  5. NORCO [Concomitant]
     Active Substance: ACETAMINOPHEN\HYDROCODONE BITARTRATE

REACTIONS (3)
  - Drug ineffective [Not Recovered/Not Resolved]
  - Contusion [Recovering/Resolving]
  - Skin atrophy [Recovering/Resolving]

NARRATIVE: CASE EVENT DATE: 20221101
